FAERS Safety Report 7003616-1 (Version None)
Quarter: 2010Q3

REPORT INFORMATION
  Report Type: 
  Country: None (occurrence: None)
  Receive Date: 20100920
  Receipt Date: 20090203
  Transmission Date: 20110219
  Serious: No
  Sender: FDA-Public Use
  Company Number: US-WYE-H08053209

PATIENT
  Sex: Female
  Weight: 85.81 kg

DRUGS (4)
  1. PROTONIX [Suspect]
     Indication: GASTROOESOPHAGEAL REFLUX DISEASE
     Route: 048
     Dates: start: 20090101
  2. MAGNESIUM [Concomitant]
  3. VYTORIN [Concomitant]
  4. PREMPRO [Concomitant]

REACTIONS (3)
  - CONSTIPATION [None]
  - FAECES HARD [None]
  - FLATULENCE [None]
